FAERS Safety Report 25585910 (Version 1)
Quarter: 2025Q3

REPORT INFORMATION
  Report Type: Spontaneous
  Country: GB (occurrence: GB)
  Receive Date: 20250721
  Receipt Date: 20250721
  Transmission Date: 20251020
  Serious: Yes (Other)
  Sender: TEVA
  Company Number: GB-MHRA-TPP7570280C9254916YC1752140009761

PATIENT
  Age: 77 Year
  Sex: Male
  Weight: 64 kg

DRUGS (14)
  1. DOXYCYCLINE [Suspect]
     Active Substance: DOXYCYCLINE
     Indication: Product used for unknown indication
     Dosage: THEN ONE DAILY
     Route: 065
     Dates: start: 20250707
  2. SILDENAFIL [Concomitant]
     Active Substance: SILDENAFIL
     Indication: Ill-defined disorder
     Dates: start: 20180615
  3. PREDNISOLONE [Concomitant]
     Active Substance: PREDNISOLONE
     Indication: Ill-defined disorder
     Dates: start: 20250707
  4. ALBUTEROL [Concomitant]
     Active Substance: ALBUTEROL
     Indication: Ill-defined disorder
     Dates: start: 20230907
  5. LANSOPRAZOLE [Concomitant]
     Active Substance: LANSOPRAZOLE
     Indication: Ill-defined disorder
     Dates: start: 20240123
  6. TAMSULOSIN HYDROCHLORIDE [Concomitant]
     Active Substance: TAMSULOSIN HYDROCHLORIDE
     Indication: Ill-defined disorder
     Dates: start: 20241021
  7. ASPIRIN [Concomitant]
     Active Substance: ASPIRIN
     Indication: Ill-defined disorder
     Dates: start: 20180423
  8. BECLOMETHASONE DIPROPIONATE [Concomitant]
     Active Substance: BECLOMETHASONE DIPROPIONATE
     Indication: Ill-defined disorder
     Dosage: INHALE
     Dates: start: 20230907
  9. BISOPROLOL [Concomitant]
     Active Substance: BISOPROLOL
     Indication: Ill-defined disorder
     Dates: start: 20250130
  10. COLCHICINE [Concomitant]
     Active Substance: COLCHICINE
     Indication: Ill-defined disorder
     Dosage: STOP BEZAFIBRAT...
     Dates: start: 20180423
  11. CETRABEN [Concomitant]
     Indication: Ill-defined disorder
     Dates: start: 20240926
  12. AMOXICILLIN [Concomitant]
     Active Substance: AMOXICILLIN
     Indication: Ill-defined disorder
     Dates: start: 20250624, end: 20250701
  13. DERMOL [Concomitant]
     Active Substance: BENZALKONIUM CHLORIDE\CHLORHEXIDINE HYDROCHLORIDE\ISOPROPYL MYRISTATE\PARAFFIN
     Indication: Ill-defined disorder
     Dates: start: 20180423
  14. BEZAFIBRATE [Concomitant]
     Active Substance: BEZAFIBRATE
     Indication: Ill-defined disorder
     Dates: start: 20180423

REACTIONS (1)
  - Dermatitis allergic [Recovering/Resolving]
